FAERS Safety Report 10049820 (Version 2)
Quarter: 2014Q2

REPORT INFORMATION
  Report Type: Spontaneous
  Country: FR (occurrence: None)
  Receive Date: 20140328
  Receipt Date: 20140423
  Transmission Date: 20141212
  Serious: Yes (Hospitalization)
  Sender: FDA-Public Use
  Company Number: SYM-2014-18878

PATIENT
  Age: 64 Year
  Sex: Male

DRUGS (12)
  1. FLAGYL (METRONIDAZOLE) (METRONIDAZOLE) [Suspect]
     Indication: SEPSIS
     Dosage: 1.5 GM, 1 IN 1 D, ORAL
     Route: 048
     Dates: start: 20140127, end: 20140209
  2. VANCOMYCINE [Suspect]
     Indication: SEPSIS
     Dosage: DAILY, INTRAVENOUS (NOT OTHERWISE SPECIFIED)
     Route: 042
     Dates: start: 20140127, end: 20140206
  3. ZYLORIC (ALLOPURINOL) [Suspect]
     Indication: PRODUCT USED FOR UNKNOWN INDICATION
     Dosage: ORAL
     Route: 048
  4. CANCIDAS (CASPOFUNGIN ACETATE) (CASPOFUNGIN ACETATE) [Suspect]
     Indication: SEPSIS
     Dosage: 50 MG, 1 IN 1 D, INTRAVENOUS (NOT OTHERWISE SPECIFIED)
     Route: 042
     Dates: start: 20140128, end: 20140204
  5. ROCEPHINE (CEFTRIAXONE SODIUM) (CETRIAXONE SODIUM) [Concomitant]
  6. GENTAMICIN (GENTAMICIN) (GENTAMICIN) [Concomitant]
  7. FORTUM (CEFTAZIDIME) (CEFTAZIDIME) [Concomitant]
  8. AMIKLIN (AMIKACIN) (AMIKACIN) [Concomitant]
  9. TIENAM (PRIMAXIN) (IMIPENEM, CILASTATIN SODIUM) [Concomitant]
  10. ARACYTINE (CYTARABINE) (CYTARABINE) [Concomitant]
  11. IDARUBICIN (IDARUBICIN) (IDARUBICIN) [Concomitant]
  12. BELUSTINE (LOMUSTINE) (LOMUSTINE) [Concomitant]

REACTIONS (8)
  - Rash maculo-papular [None]
  - Skin exfoliation [None]
  - Purpura [None]
  - Blood culture positive [None]
  - Device related infection [None]
  - Staphylococcal infection [None]
  - Toxic skin eruption [None]
  - Sepsis [None]
